FAERS Safety Report 11280690 (Version 7)
Quarter: 2016Q2

REPORT INFORMATION
  Report Type: Spontaneous
  Country: JP (occurrence: JP)
  Receive Date: 20150717
  Receipt Date: 20160504
  Transmission Date: 20160815
  Serious: Yes (Hospitalization)
  Sender: FDA-Public Use
  Company Number: JP-ABBVIE-15P-087-1425158-00

PATIENT
  Age: 78 Year
  Sex: Female
  Weight: 42.5 kg

DRUGS (4)
  1. MEMANTINE HYDROCHLORIDE. [Concomitant]
     Active Substance: MEMANTINE HYDROCHLORIDE
     Indication: DEMENTIA OF THE ALZHEIMER^S TYPE, WITH DEPRESSED MOOD
     Route: 048
     Dates: start: 20140410
  2. DEPAKENE [Suspect]
     Active Substance: VALPROIC ACID
     Indication: DEPRESSION
     Route: 048
     Dates: start: 20140423, end: 20140501
  3. DEPAKENE [Suspect]
     Active Substance: VALPROIC ACID
     Indication: BIPOLAR DISORDER
     Route: 048
     Dates: start: 20140501, end: 20140822
  4. LUVOX [Suspect]
     Active Substance: FLUVOXAMINE MALEATE
     Indication: DEMENTIA OF THE ALZHEIMER^S TYPE, WITH DEPRESSED MOOD
     Route: 048
     Dates: start: 20140410, end: 20140822

REACTIONS (10)
  - Decubitus ulcer [Recovered/Resolved]
  - Sedation [Recovered/Resolved]
  - Pyrexia [Unknown]
  - Arthritis [Unknown]
  - Drug-induced liver injury [Recovered/Resolved]
  - Abasia [Recovered/Resolved]
  - Arthralgia [Unknown]
  - Dehydration [Unknown]
  - Oedema peripheral [Unknown]
  - Heat illness [Unknown]

NARRATIVE: CASE EVENT DATE: 20140815
